FAERS Safety Report 14926366 (Version 1)
Quarter: 2018Q2

REPORT INFORMATION
  Report Type: Spontaneous
  Country: CZ (occurrence: CZ)
  Receive Date: 20180523
  Receipt Date: 20180523
  Transmission Date: 20180711
  Serious: Yes (Disabling, Other)
  Sender: FDA-Public Use
  Company Number: CZ-TEVA-2018-CZ-894530

PATIENT
  Age: 39 Year
  Sex: Male
  Weight: 72 kg

DRUGS (3)
  1. OLANZAPIN [Concomitant]
     Active Substance: OLANZAPINE
     Indication: DEPRESSION
     Dosage: THE DOSAGE: 5 MG FOR HALF SEPTEMBER THEN 2,5 MG.
     Route: 048
     Dates: start: 20170807, end: 20171002
  2. CITALOPRAM [Suspect]
     Active Substance: CITALOPRAM HYDROBROMIDE
     Indication: DEPRESSION
     Dosage: THE DOSAGE: 20 MG THE 1ST 2 WEEKS THEN 40 MG, GRADUALLY DECREASE FROM 11/2017, LAST DOSING SCHEME IN
     Route: 048
     Dates: start: 20170712, end: 20171215
  3. MIRTAZAPIN [Concomitant]
     Active Substance: MIRTAZAPINE
     Indication: DEPRESSION
     Dosage: THE DOSAGE: 15 MG INITIAL DOSE, 30 MG AFTER 1 WEEK, 45 MG AFTER 4 WEEKS, DECREASE OF DOSE TO 30 MG A
     Route: 048
     Dates: start: 20170712, end: 20171115

REACTIONS (8)
  - Male sexual dysfunction [Not Recovered/Not Resolved]
  - Sexual dysfunction [Not Recovered/Not Resolved]
  - Inadequate lubrication [Not Recovered/Not Resolved]
  - Anhedonia [Not Recovered/Not Resolved]
  - Organic erectile dysfunction [Not Recovered/Not Resolved]
  - Erectile dysfunction [Not Recovered/Not Resolved]
  - Anorgasmia [Not Recovered/Not Resolved]
  - Loss of libido [Not Recovered/Not Resolved]

NARRATIVE: CASE EVENT DATE: 201708
